FAERS Safety Report 18291121 (Version 1)
Quarter: 2020Q3

REPORT INFORMATION
  Report Type: Spontaneous
  Country: DE (occurrence: DE)
  Receive Date: 20200921
  Receipt Date: 20200921
  Transmission Date: 20201103
  Serious: Yes (Congenital Anomaly)
  Sender: FDA-Public Use
  Company Number: DE-PFIZER INC-2020359090

PATIENT
  Sex: Female
  Weight: 3.86 kg

DRUGS (3)
  1. LEFLUNOMIDE. [Suspect]
     Active Substance: LEFLUNOMIDE
     Dosage: 20 MG (WASHED OUT IN JUN?2018 DURING PREGNANCY)
     Route: 064
  2. OLUMIANT [Suspect]
     Active Substance: BARICITINIB
     Dosage: 4 MG, 1X/DAY (DISCONTINUED IN PREGNANCY)
     Route: 064
     Dates: end: 20180606
  3. SULFASALAZINE. [Suspect]
     Active Substance: SULFASALAZINE
     Dosage: 500 MG (INCREASED TO 2?0?2)
     Route: 064
     Dates: start: 20180808, end: 20190214

REACTIONS (2)
  - Maternal exposure during pregnancy [Unknown]
  - Developmental hip dysplasia [Unknown]
